FAERS Safety Report 9174946 (Version 1)
Quarter: 2013Q1

REPORT INFORMATION
  Report Type: Spontaneous
  Country: US (occurrence: US)
  Receive Date: 20130320
  Receipt Date: 20130320
  Transmission Date: 20140127
  Serious: No
  Sender: FDA-Public Use
  Company Number: US-BAYER-2013-034944

PATIENT
  Age: 74 Year
  Sex: Male
  Weight: 74.83 kg

DRUGS (4)
  1. ALEVE CAPLET/TABLET,MIDOL EXTENDED RELIEF CAPLET [Suspect]
     Indication: ARTHRITIS
     Dosage: 2 DF, BID
     Route: 048
     Dates: start: 2011, end: 201303
  2. BLOOD PRESSURE MEDICATION (NOS) [Concomitant]
  3. HIGH CHOLESTEROL MEDICATION [Concomitant]
  4. 2 PRESCRIPTION ACID REFLUX MEDICATIONS [Concomitant]

REACTIONS (3)
  - Overdose [None]
  - Drug ineffective [None]
  - Incorrect drug administration duration [None]
